FAERS Safety Report 16244493 (Version 1)
Quarter: 2019Q2

REPORT INFORMATION
  Report Type: Spontaneous
  Country: DE (occurrence: DE)
  Receive Date: 20190426
  Receipt Date: 20190426
  Transmission Date: 20190711
  Serious: Yes (Life-Threatening, Hospitalization, Other)
  Sender: FDA-Public Use
  Company Number: PHHY2019DE094895

PATIENT
  Age: 61 Year
  Sex: Male

DRUGS (23)
  1. ALLOPURINOL. [Concomitant]
     Active Substance: ALLOPURINOL
     Indication: PROPHYLAXIS
     Dosage: 300 MG, QD
     Route: 048
     Dates: start: 20140616, end: 20140806
  2. AMPHOTERICIN B. [Concomitant]
     Active Substance: AMPHOTERICIN B
     Indication: GASTRITIS
     Route: 065
  3. DOXORUBICIN [Suspect]
     Active Substance: DOXORUBICIN
     Indication: B-CELL LYMPHOMA
     Dosage: 99.5 MG, Q2W LAST CYCLE OF CHOP PRIOR TO SAE 28 AUG 2014
     Route: 042
     Dates: start: 20140516
  4. VINCRISTINE [Suspect]
     Active Substance: VINCRISTINE
     Indication: B-CELL LYMPHOMA
     Dosage: 4 MG, Q2W LAST CYCLE OF CHOP PRIOR TO SAE 28 AUG 2014
     Route: 042
     Dates: start: 20140516
  5. SULFAMETHOXAZOLE AND TRIMETHOPRIM [Concomitant]
     Active Substance: SULFAMETHOXAZOLE\TRIMETHOPRIM
     Indication: PROPHYLAXIS
     Dosage: 2880 MG, QW
     Route: 048
     Dates: start: 201405
  6. TICAGRELOR. [Concomitant]
     Active Substance: TICAGRELOR
     Indication: CORONARY ARTERY DISEASE
     Dosage: 180 MG, QD
     Route: 048
     Dates: start: 201408
  7. PANTOPRAZOLE [Concomitant]
     Active Substance: PANTOPRAZOLE
     Indication: PROPHYLAXIS
     Dosage: 20 MG, QD
     Route: 065
     Dates: start: 201408
  8. PREDNISONE. [Suspect]
     Active Substance: PREDNISONE
     Indication: B-CELL LYMPHOMA
     Dosage: 500 MG, Q2W (FOR 5 DAYS) LAST CYCLE OF CHOP PRIOR TO SAE 28 AUG 2014
     Route: 048
     Dates: start: 20140516
  9. SIMVASTATIN. [Concomitant]
     Active Substance: SIMVASTATIN
     Indication: CORONARY ARTERY DISEASE
     Dosage: UNK
     Route: 065
  10. ENTECAVIR. [Concomitant]
     Active Substance: ENTECAVIR
     Indication: PROPHYLAXIS
     Dosage: 5 MG, QD
     Route: 048
     Dates: start: 201405
  11. RITUXIMAB. [Suspect]
     Active Substance: RITUXIMAB
     Indication: B-CELL LYMPHOMA
     Dosage: 750.3 MG, Q2W (LAST DOSE PRIOR TO SAE:08 JUL 2014, CYCLE NO 5, THEN ON 25 AUG 2014)
     Route: 042
     Dates: start: 20140515
  12. AMPHOTERICIN B. [Concomitant]
     Active Substance: AMPHOTERICIN B
     Indication: PROPHYLAXIS
     Dosage: 300 MG, QD (RESTARTED ON UNK/SEP/2014 AND STOPPED ON UNKNOWN DATE)
     Route: 048
     Dates: start: 2014, end: 20140806
  13. CLOPIDOGREL [Concomitant]
     Active Substance: CLOPIDOGREL BISULFATE
     Indication: PROPHYLAXIS
     Dosage: 1000 MILLIGRAM, QD
     Route: 048
     Dates: start: 20140616
  14. BISOPROLOL/HYDROCHLOROTHIAZID [Concomitant]
     Indication: CORONARY ARTERY DISEASE
     Dosage: 1 OT, QD (UNK, QD (5/12.5, 10/25 MILLIGRAM))
     Route: 048
     Dates: start: 20140616
  15. METFORMIN [Concomitant]
     Active Substance: METFORMIN HYDROCHLORIDE
     Indication: TYPE 2 DIABETES MELLITUS
     Dosage: 2000 MG, QD
     Route: 048
     Dates: start: 201408
  16. PEGFILGRASTIM [Suspect]
     Active Substance: PEGFILGRASTIM
     Indication: PRODUCT USED FOR UNKNOWN INDICATION
     Dosage: 6 MG, UNK
     Route: 058
  17. ASPIRIN. [Concomitant]
     Active Substance: ASPIRIN
     Indication: CORONARY ARTERY DISEASE
     Dosage: 100 MG, QD
     Route: 048
     Dates: start: 20140901
  18. CANDESARTAN. [Concomitant]
     Active Substance: CANDESARTAN
     Indication: HYPERTENSION
     Dosage: 8 MG, QD
     Route: 048
     Dates: start: 20140616
  19. CYCLOPHOSPHAMIDE. [Suspect]
     Active Substance: CYCLOPHOSPHAMIDE
     Indication: B-CELL LYMPHOMA
     Dosage: 1485.3 MG, Q2W LAST CYCLE OF CHOP PRIOR TO SAE 28 AUG 2014
     Route: 042
     Dates: start: 20140516
  20. SIMVASTATIN. [Concomitant]
     Active Substance: SIMVASTATIN
     Indication: HYPERLIPIDAEMIA
     Dosage: 40 MG, QD
     Route: 048
     Dates: start: 201408
  21. ASPIRIN. [Concomitant]
     Active Substance: ASPIRIN
     Indication: PROPHYLAXIS
     Dosage: UNK
     Route: 065
  22. AMLODIPINE [Concomitant]
     Active Substance: AMLODIPINE BESYLATE
     Indication: CORONARY ARTERY DISEASE
     Dosage: 5 MG, QD
     Route: 048
     Dates: start: 2004
  23. RANITIDINE. [Concomitant]
     Active Substance: RANITIDINE
     Indication: PROPHYLAXIS
     Dosage: 300 MG, QD
     Route: 048
     Dates: start: 20140616, end: 20140806

REACTIONS (6)
  - Myocardial infarction [Recovered/Resolved]
  - Angina pectoris [Recovered/Resolved]
  - Vascular stent stenosis [Recovered/Resolved]
  - Ventricular tachycardia [Unknown]
  - Gastritis [Unknown]
  - Arrhythmia [Unknown]

NARRATIVE: CASE EVENT DATE: 20140731
